FAERS Safety Report 6980273-1 (Version None)
Quarter: 2010Q3

REPORT INFORMATION
  Report Type: 
  Country: None (occurrence: None)
  Receive Date: 20100914
  Receipt Date: 20100902
  Transmission Date: 20110219
  Serious: Yes (Hospitalization)
  Sender: FDA-Public Use
  Company Number: JP-ROCHE-709683

PATIENT
  Sex: Male
  Weight: 66 kg

DRUGS (5)
  1. AVASTIN [Suspect]
     Indication: COLON CANCER METASTATIC
     Route: 041
     Dates: start: 20090127, end: 20090511
  2. ELPLAT [Suspect]
     Indication: COLON CANCER METASTATIC
     Route: 041
     Dates: start: 20090113, end: 20090511
  3. ISOVORIN [Suspect]
     Indication: COLON CANCER METASTATIC
     Route: 041
     Dates: start: 20090113, end: 20090512
  4. FLUOROURACIL [Suspect]
     Indication: COLON CANCER METASTATIC
     Route: 042
     Dates: start: 20090113, end: 20090513
  5. FLUOROURACIL [Suspect]
     Dosage: DOSE IS UNCERTAIN:ROUTE INTRAVENOUS BOLUS.
     Route: 042

REACTIONS (2)
  - LIVER ABSCESS [None]
  - PYREXIA [None]
